FAERS Safety Report 5916006-7 (Version None)
Quarter: 2008Q4

REPORT INFORMATION
  Report Type: 
  Country: None (occurrence: None)
  Receive Date: 20081013
  Receipt Date: 20081003
  Transmission Date: 20090506
  Serious: Yes (Hospitalization)
  Sender: FDA-Public Use
  Company Number: FR-JNJFOC-20081001064

PATIENT
  Sex: Female

DRUGS (10)
  1. RISPERDAL [Suspect]
     Indication: DRUG USE FOR UNKNOWN INDICATION
     Route: 048
  2. TERCIAN [Interacting]
     Indication: DRUG USE FOR UNKNOWN INDICATION
     Route: 048
  3. STABLON [Interacting]
     Indication: DRUG USE FOR UNKNOWN INDICATION
     Route: 048
  4. TRIVASTAL [Interacting]
     Indication: DRUG USE FOR UNKNOWN INDICATION
     Route: 048
  5. CARDENSIEL [Interacting]
     Indication: DRUG USE FOR UNKNOWN INDICATION
     Route: 048
  6. PREVISCAN [Concomitant]
     Route: 065
  7. LEVODOPA [Concomitant]
     Route: 065
  8. CORDARONE [Concomitant]
     Route: 065
  9. AKINETON [Concomitant]
     Route: 065
  10. LASIX [Concomitant]
     Route: 065

REACTIONS (6)
  - DRUG INTERACTION [None]
  - DYSPNOEA EXERTIONAL [None]
  - FALL [None]
  - MALAISE [None]
  - ORTHOSTATIC HYPOTENSION [None]
  - VERTIGO [None]
